FAERS Safety Report 5146221-4 (Version None)
Quarter: 2006Q4

REPORT INFORMATION
  Report Type: 
  Country: None (occurrence: None)
  Receive Date: 20061108
  Receipt Date: 20061030
  Transmission Date: 20070319
  Serious: Yes (Hospitalization)
  Sender: FDA-Public Use
  Company Number: JP-BRISTOL-MYERS SQUIBB COMPANY-13567029

PATIENT
  Age: 40 Year
  Sex: Female

DRUGS (3)
  1. ENDOXAN [Suspect]
     Indication: PROPHYLACTIC CHEMOTHERAPY
     Route: 048
  2. FARMORUBICIN [Suspect]
     Indication: PROPHYLACTIC CHEMOTHERAPY
     Route: 042
  3. FLUOROURACIL [Concomitant]
     Indication: PROPHYLACTIC CHEMOTHERAPY

REACTIONS (4)
  - CARDIAC FAILURE CONGESTIVE [None]
  - DYSPNOEA [None]
  - PALPITATIONS [None]
  - PULMONARY OEDEMA [None]
